FAERS Safety Report 5513098-4 (Version None)
Quarter: 2007Q4

REPORT INFORMATION
  Report Type: 
  Country: None (occurrence: None)
  Receive Date: 20071112
  Receipt Date: 20071101
  Transmission Date: 20080405
  Serious: Yes (Hospitalization)
  Sender: FDA-Public Use
  Company Number: GB-BAXTER-2007BH008437

PATIENT
  Age: 51 Year
  Sex: Male
  Weight: 110 kg

DRUGS (3)
  1. EXTRANEAL [Suspect]
     Indication: PERITONEAL DIALYSIS
     Route: 033
     Dates: start: 20070910, end: 20070924
  2. EXTRANEAL [Suspect]
     Dosage: DOSE UNIT:UNKNOWN
     Route: 033
     Dates: start: 20070924, end: 20070928
  3. PD4 [Concomitant]
     Indication: PERITONEAL DIALYSIS
     Dates: start: 20070910, end: 20070924

REACTIONS (4)
  - FUNGAL PERITONITIS [None]
  - HYPOTENSION [None]
  - NAUSEA [None]
  - VOMITING [None]
